FAERS Safety Report 5824863-8 (Version None)
Quarter: 2008Q3

REPORT INFORMATION
  Report Type: 
  Country: None (occurrence: None)
  Receive Date: 20080728
  Receipt Date: 20080716
  Transmission Date: 20090109
  Serious: No
  Sender: FDA-Public Use
  Company Number: US-BOEHRINGER INGELHEIM GMBH, GERMANY-2008-BP-11138BP

PATIENT
  Age: 78 Year
  Sex: Female

DRUGS (6)
  1. CATAPRES-TTS-1 [Suspect]
     Indication: HYPERTENSION
     Route: 061
     Dates: start: 20070301
  2. NORVASC [Concomitant]
     Indication: HYPERTENSION
     Dates: start: 20070323, end: 20080601
  3. FUROSEMIDE [Concomitant]
     Indication: HYPERTENSION
     Dates: start: 20070323
  4. PROPRANOLOL [Concomitant]
     Indication: HYPERTENSION
     Dates: start: 20070323
  5. VYTORIN [Concomitant]
     Indication: HYPERCHOLESTEROLAEMIA
     Dates: start: 20070323
  6. ENALAPRIL MALEATE [Concomitant]
     Indication: HYPERTENSION
     Dates: start: 20070323

REACTIONS (3)
  - DIZZINESS [None]
  - HYPERTENSION [None]
  - HYPOTENSION [None]
